FAERS Safety Report 16940623 (Version 4)
Quarter: 2019Q4

REPORT INFORMATION
  Report Type: Report from Study
  Country: CN (occurrence: CN)
  Receive Date: 20191021
  Receipt Date: 20191202
  Transmission Date: 20200122
  Serious: Yes (Other)
  Sender: FDA-Public Use
  Company Number: PHHY2018CN085956

PATIENT
  Age: 40 Year
  Sex: Male

DRUGS (16)
  1. MYFORTIC [Suspect]
     Active Substance: MYCOPHENOLATE SODIUM
     Dosage: 2160 MG, QD
     Route: 065
     Dates: start: 20180731, end: 20180731
  2. CEFOXITIN SODIUM [Concomitant]
     Active Substance: CEFOXITIN SODIUM
     Indication: INFECTION PROPHYLAXIS
     Dosage: 2 G, BID
     Route: 042
     Dates: start: 20180731, end: 20180808
  3. SIROLIMUS. [Concomitant]
     Active Substance: SIROLIMUS
     Indication: PROPHYLAXIS
     Dosage: 2 MG, QD
     Route: 048
     Dates: start: 20180830, end: 20180913
  4. MYFORTIC [Suspect]
     Active Substance: MYCOPHENOLATE SODIUM
     Indication: RENAL TRANSPLANT
     Dosage: 2160 MG, QD (INITIAL DOSING)
     Route: 065
     Dates: start: 20180730, end: 20180730
  5. MYFORTIC [Suspect]
     Active Substance: MYCOPHENOLATE SODIUM
     Dosage: 1080 MG, QD (CLINICAL CONVENTIONAL DOSE)
     Route: 065
     Dates: start: 20180801, end: 20180813
  6. MYFORTIC [Suspect]
     Active Substance: MYCOPHENOLATE SODIUM
     Dosage: 2160 MG, QD (CLINICAL CONVENTIONAL DOSE)
     Route: 065
     Dates: start: 20190117, end: 20190204
  7. BASILIXIMAB [Suspect]
     Active Substance: BASILIXIMAB
     Indication: RENAL TRANSPLANT
     Dosage: 20 MG, QD
     Route: 065
     Dates: start: 20180730, end: 20180730
  8. MYFORTIC [Suspect]
     Active Substance: MYCOPHENOLATE SODIUM
     Dosage: 2160 MG, QD (CLINICAL CONVENTIONAL DOSE)
     Route: 065
     Dates: start: 20180814
  9. DEXAMETHASONE SODIUM PHOSPHATE. [Concomitant]
     Active Substance: DEXAMETHASONE SODIUM PHOSPHATE
     Indication: PROPHYLAXIS
     Dosage: 5 MG, QD
     Route: 042
     Dates: start: 20180803, end: 20180805
  10. MYFORTIC [Suspect]
     Active Substance: MYCOPHENOLATE SODIUM
     Dosage: 2160 MG, QD (CLINICAL CONVENTIONAL DOSE)
     Route: 065
     Dates: start: 20180816, end: 20180828
  11. FUROSEMIDE. [Concomitant]
     Active Substance: FUROSEMIDE
     Indication: DIURETIC THERAPY
     Dosage: 20 MG, BID
     Route: 042
     Dates: start: 20180803, end: 20180805
  12. DIPHENHYDRAMINE HCL [Concomitant]
     Active Substance: DIPHENHYDRAMINE HYDROCHLORIDE
     Indication: LOCAL ANAESTHESIA
     Dosage: 20 MG, QD
     Route: 042
     Dates: start: 20180804, end: 20180805
  13. NIFEDIPINE. [Concomitant]
     Active Substance: NIFEDIPINE
     Indication: HYPERTENSION
     Dosage: 30 MG, BID
     Route: 048
     Dates: start: 20180731
  14. TOLTERODINE TARTRATE. [Concomitant]
     Active Substance: TOLTERODINE TARTRATE
     Indication: MUSCLE SPASMS
     Dosage: 4 MG, QD
     Route: 048
     Dates: start: 20180731, end: 20180806
  15. TOLTERODINE TARTRATE. [Concomitant]
     Active Substance: TOLTERODINE TARTRATE
     Indication: PAIN
  16. PANTOPRAZOLE SODIUM. [Concomitant]
     Active Substance: PANTOPRAZOLE SODIUM
     Indication: PROPHYLAXIS
     Dosage: 40 MG, BID
     Route: 042
     Dates: start: 20180731, end: 20180806

REACTIONS (14)
  - Pneumocystis jirovecii pneumonia [Recovered/Resolved]
  - Upper respiratory tract infection [Recovered/Resolved]
  - Hyperuricaemia [Recovered/Resolved]
  - Vomiting [Recovered/Resolved]
  - Oedema peripheral [Recovered/Resolved]
  - Hypertension [Not Recovered/Not Resolved]
  - Gout [Recovered/Resolved]
  - Diarrhoea [Recovered/Resolved]
  - Diarrhoea [Recovered/Resolved]
  - Diarrhoea [Recovered/Resolved]
  - Urinary tract infection [Recovered/Resolved]
  - Nausea [Recovered/Resolved]
  - Gastric ulcer [Recovered/Resolved]
  - Mouth ulceration [Recovered/Resolved]

NARRATIVE: CASE EVENT DATE: 20180804
